FAERS Safety Report 18455428 (Version 3)
Quarter: 2023Q4

REPORT INFORMATION
  Report Type: Spontaneous
  Country: US (occurrence: US)
  Receive Date: 20201103
  Receipt Date: 20231113
  Transmission Date: 20240110
  Serious: Yes (Hospitalization, Other)
  Sender: FDA-Public Use
  Company Number: US-LUPIN PHARMACEUTICALS INC.-2020-08190

PATIENT
  Age: 77 Year
  Sex: Female

DRUGS (6)
  1. DULOXETINE [Suspect]
     Active Substance: DULOXETINE
     Indication: Pain
     Dosage: 60 MILLIGRAM, QD (SHE HAD BEEN RECEIVING DULOXETINE FOR PAST 1 YEAR AND SHE ABRUPTLY STOPPED ONE MON
     Route: 065
  2. DULOXETINE [Suspect]
     Active Substance: DULOXETINE
     Indication: Arthritis
     Dosage: 20 MILLIGRAM, BID
     Route: 065
  3. POTASSIUM [Suspect]
     Active Substance: POTASSIUM
     Indication: Mineral supplementation
     Dosage: UNK
     Route: 065
  4. POTASSIUM [Suspect]
     Active Substance: POTASSIUM
     Indication: Hypokalaemia
     Dosage: UNK, RESTARTED
     Route: 065
  5. METHYLPHENIDATE [Concomitant]
     Active Substance: METHYLPHENIDATE
     Indication: Narcolepsy
     Dosage: 50 MILLIGRAM, QD (EXTENDED RELEASE FORMULATION)
     Route: 065
  6. METHYLPHENIDATE [Concomitant]
     Active Substance: METHYLPHENIDATE
     Indication: Cataplexy

REACTIONS (7)
  - Cataplexy [Recovered/Resolved]
  - Drug withdrawal syndrome [Recovered/Resolved]
  - Dry mouth [Unknown]
  - Treatment noncompliance [Unknown]
  - Drug effective for unapproved indication [Unknown]
  - Off label use [Unknown]
  - Product dose omission issue [Unknown]
